FAERS Safety Report 6551915-X (Version None)
Quarter: 2010Q1

REPORT INFORMATION
  Report Type: 
  Country: None (occurrence: None)
  Receive Date: 20100126
  Receipt Date: 20100114
  Transmission Date: 20100710
  Serious: Yes (Death)
  Sender: FDA-Public Use
  Company Number: US-ELI_LILLY_AND_COMPANY-US200907002656

PATIENT
  Sex: Male
  Weight: 95.692 kg

DRUGS (7)
  1. ZYPREXA [Suspect]
     Dosage: 1 D/F, UNK
  2. ZYPREXA [Suspect]
     Dosage: 20 MG, EACH EVENING
     Route: 048
  3. DEPAKOTE ER [Concomitant]
     Dosage: 1000 MG, EACH EVENING
  4. TRAZODONE [Concomitant]
     Dosage: 100 MG, UNK
  5. HYDROXYZINE [Concomitant]
     Dosage: 50 MG, UNK
  6. TOPAMAX [Concomitant]
     Dosage: 100 MG, 2/D
     Route: 048
  7. AMANTADINE HCL [Concomitant]
     Dosage: 100 MG, 2/D

REACTIONS (1)
  - DEATH [None]
